FAERS Safety Report 5903312-5 (Version None)
Quarter: 2008Q3

REPORT INFORMATION
  Report Type: 
  Country: None (occurrence: None)
  Receive Date: 20080930
  Receipt Date: 20080926
  Transmission Date: 20090109
  Serious: Yes (Life-Threatening)
  Sender: FDA-Public Use
  Company Number: B0538868A

PATIENT
  Age: 30 Year
  Sex: Female

DRUGS (3)
  1. ZANTAC [Suspect]
     Indication: GASTRITIS
     Dosage: 75MG PER DAY
     Route: 048
     Dates: start: 20080918, end: 20080918
  2. CEREKINON [Concomitant]
     Indication: GASTRITIS
     Route: 048
     Dates: start: 20080905
  3. TEPRENONE [Concomitant]
     Indication: GASTRITIS
     Route: 048
     Dates: start: 20080905

REACTIONS (4)
  - ANAPHYLACTIC REACTION [None]
  - DYSPNOEA [None]
  - THIRST [None]
  - URTICARIA [None]
